FAERS Safety Report 25464610 (Version 3)
Quarter: 2025Q4

REPORT INFORMATION
  Report Type: Report from Study
  Country: CA (occurrence: CA)
  Receive Date: 20250621
  Receipt Date: 20251030
  Transmission Date: 20260117
  Serious: Yes (Hospitalization, Other)
  Sender: AMGEN
  Company Number: CA-AMGEN-CANSL2024249237

PATIENT
  Age: 84 Year
  Sex: Female
  Weight: 67.5 kg

DRUGS (9)
  1. MVASI [Suspect]
     Active Substance: BEVACIZUMAB-AWWB
     Indication: Colorectal cancer metastatic
     Dosage: 365 MILLIGRAM, Q2WK
     Route: 040
     Dates: start: 20241217
  2. MVASI [Suspect]
     Active Substance: BEVACIZUMAB-AWWB
     Dosage: 360 MILLIGRAM, EVERY 15 DAYS (5MG/KG)
     Route: 040
     Dates: start: 20250121, end: 2025
  3. MVASI [Suspect]
     Active Substance: BEVACIZUMAB-AWWB
     Dosage: 360 MILLIGRAM, EVERY 15 DAYS
     Route: 040
     Dates: start: 2025
  4. MVASI [Suspect]
     Active Substance: BEVACIZUMAB-AWWB
     Dosage: 330 MILLIGRAM, Q2WK (5MG/KG)
     Route: 040
     Dates: start: 20250526
  5. MVASI [Suspect]
     Active Substance: BEVACIZUMAB-AWWB
     Dosage: 337.5 MILLIGRAM, Q2WK
     Route: 040
     Dates: start: 20250609
  6. MVASI [Suspect]
     Active Substance: BEVACIZUMAB-AWWB
     Dosage: 330 MILLIGRAM, Q2WK
     Route: 040
  7. LONSURF [Concomitant]
     Active Substance: TIPIRACIL HYDROCHLORIDE\TRIFLURIDINE
     Dosage: 60 MILLIGRAM, Q2WK
     Route: 065
  8. FILGRASTIM [Concomitant]
     Active Substance: FILGRASTIM
     Dosage: 300 MICROGRAM/0.5 ML, QD AT DAY 6, 7, 13, 14 (CYCLE OF 28 DAYS)
     Route: 058
  9. ELIQUIS [Concomitant]
     Active Substance: APIXABAN
     Dosage: TWICE A DAY (BID)

REACTIONS (12)
  - Haematochezia [Recovered/Resolved]
  - Unevaluable event [Recovered/Resolved]
  - Intestinal obstruction [Recovered/Resolved]
  - Nausea [Recovered/Resolved]
  - Vomiting [Recovered/Resolved]
  - Pain in extremity [Recovered/Resolved]
  - Dermatitis allergic [Recovered/Resolved]
  - Ill-defined disorder [Recovered/Resolved]
  - Fatigue [Recovered/Resolved]
  - Interventional procedure [Recovered/Resolved]
  - Pruritus allergic [Recovered/Resolved]
  - Off label use [Unknown]

NARRATIVE: CASE EVENT DATE: 20241217
